FAERS Safety Report 21595415 (Version 1)
Quarter: 2022Q4

REPORT INFORMATION
  Report Type: Spontaneous
  Country: LK (occurrence: LK)
  Receive Date: 20221115
  Receipt Date: 20221115
  Transmission Date: 20230112
  Serious: Yes (Hospitalization, Other)
  Sender: FDA-Public Use
  Company Number: LK-ALKEM LABORATORIES LIMITED-LK-ALKEM-2022-09592

PATIENT
  Age: 43 Year
  Sex: Female

DRUGS (1)
  1. DICLOFENAC [Suspect]
     Active Substance: DICLOFENAC
     Indication: Headache
     Dosage: 100 MILLIGRAM (TABLET)
     Route: 065

REACTIONS (2)
  - Hypertension [Recovered/Resolved]
  - Anaphylactic reaction [Unknown]
